FAERS Safety Report 19631592 (Version 1)
Quarter: 2021Q3

REPORT INFORMATION
  Report Type: Spontaneous
  Country: US (occurrence: US)
  Receive Date: 20210729
  Receipt Date: 20210729
  Transmission Date: 20211014
  Serious: No
  Sender: FDA-Public Use
  Company Number: US-LUPIN PHARMACEUTICALS INC.-2021-12785

PATIENT
  Age: 62 Year
  Sex: Male

DRUGS (2)
  1. TYLENOL [Concomitant]
     Active Substance: ACETAMINOPHEN
     Indication: PRODUCT USED FOR UNKNOWN INDICATION
     Dosage: UNK
     Route: 065
  2. ALBUTEROL SULFATE INHALATION AEROSOL, 90 MCG/ACTUATION [Suspect]
     Active Substance: ALBUTEROL SULFATE
     Indication: PNEUMONIA
     Dosage: UNK UNK, PRN (2 PUFFS 4 TIMES DAILY AS NEEDED)
     Dates: start: 20210707

REACTIONS (5)
  - Product use in unapproved indication [Unknown]
  - No adverse event [None]
  - Device issue [Unknown]
  - Device delivery system issue [Unknown]
  - Product preparation error [Unknown]

NARRATIVE: CASE EVENT DATE: 202107
